FAERS Safety Report 7794889-6 (Version None)
Quarter: 2011Q4

REPORT INFORMATION
  Report Type: 
  Country: None (occurrence: None)
  Receive Date: 20111004
  Receipt Date: 20110922
  Transmission Date: 20120403
  Serious: Yes (Other)
  Sender: FDA-Public Use
  Company Number: PHHY2011AR84927

PATIENT
  Sex: Female

DRUGS (1)
  1. EXFORGE [Suspect]
     Indication: HYPERTENSION
     Dosage: 2 DF (320 MG VALS AND 10 MG AMLO), DAILY
     Dates: start: 20090101, end: 20101223

REACTIONS (3)
  - MENINGITIS [None]
  - CEREBROVASCULAR ACCIDENT [None]
  - CARDIAC ARREST [None]
